FAERS Safety Report 13092826 (Version 1)
Quarter: 2017Q1

REPORT INFORMATION
  Report Type: Spontaneous
  Country: US (occurrence: US)
  Receive Date: 20170105
  Receipt Date: 20170105
  Transmission Date: 20170428
  Serious: Yes (Other)
  Sender: FDA-Public Use
  Company Number: None

PATIENT
  Age: 76 Year
  Sex: Male
  Weight: 85.5 kg

DRUGS (2)
  1. SIMVASTATIN. [Suspect]
     Active Substance: SIMVASTATIN
     Indication: BLOOD CHOLESTEROL
     Dosage: ?          QUANTITY:1 TABLET(S);?
     Route: 048
     Dates: start: 20070920, end: 20161020
  2. VITAMIN D3 [Concomitant]
     Active Substance: CHOLECALCIFEROL

REACTIONS (5)
  - Arthralgia [None]
  - Muscular weakness [None]
  - Constipation [None]
  - Headache [None]
  - Muscle spasms [None]

NARRATIVE: CASE EVENT DATE: 20161010
